FAERS Safety Report 10541154 (Version 1)
Quarter: 2014Q4

REPORT INFORMATION
  Report Type: Spontaneous
  Country: US (occurrence: None)
  Receive Date: 20141020
  Receipt Date: 20141020
  Transmission Date: 20150529
  Serious: No
  Sender: FDA-Public Use
  Company Number: None

PATIENT

DRUGS (2)
  1. FUROSEMIDE (FUROSEMIDE) [Suspect]
     Active Substance: FUROSEMIDE
     Dosage: DOSAGE FORM: INJECTABLE, ADM ROUTE: IV OR IM USE, STRENGTH: 20 MG/2ML, TYPE: SINGLE DOSE VIAL, SIZE: 2 ML
  2. KETOROLAC (KETOROLAC) [Suspect]
     Active Substance: KETOROLAC TROMETHAMINE
     Dosage: DOSAGE FORM: INJECTABLE, ADM ROUTE: IV OR IM USE, STRENGTH: 30 MG TYPE: SINGLE DOSE VIAL, SIZE: 1 ML

REACTIONS (2)
  - Intercepted drug dispensing error [None]
  - Product container issue [None]
